FAERS Safety Report 18017381 (Version 4)
Quarter: 2022Q2

REPORT INFORMATION
  Report Type: Report from Study
  Country: TH (occurrence: TH)
  Receive Date: 20200713
  Receipt Date: 20220420
  Transmission Date: 20220721
  Serious: Yes (Other)
  Sender: FDA-Public Use
  Company Number: TH-NOVARTISPH-NVSC2020TH194235

PATIENT
  Sex: Female

DRUGS (5)
  1. KISQALI [Suspect]
     Active Substance: RIBOCICLIB
     Indication: Breast cancer metastatic
     Dosage: 2 DF, QD (IN THE MORNING FOR 21 DAYS THEN STOPPED 7 DAYS)
     Route: 065
     Dates: start: 20190926
  2. KISQALI [Suspect]
     Active Substance: RIBOCICLIB
     Dosage: 1 DF, QD (FOR 21 DAYS THEN STOPPED 7 DAYS)
     Route: 065
  3. KISQALI [Suspect]
     Active Substance: RIBOCICLIB
     Dosage: UNK (TOOK THE SAME DOSE)
     Route: 065
     Dates: start: 202111
  4. KISQALI [Suspect]
     Active Substance: RIBOCICLIB
     Dosage: UNK, (2 TABLETS) QD
     Route: 048
  5. KISQALI [Suspect]
     Active Substance: RIBOCICLIB
     Dosage: UNK, (1 TABLET) QD
     Route: 048

REACTIONS (16)
  - Asphyxia [Recovering/Resolving]
  - Liver injury [Recovering/Resolving]
  - Chest discomfort [Recovering/Resolving]
  - Drooling [Recovering/Resolving]
  - Feeding disorder [Recovering/Resolving]
  - Somnolence [Recovering/Resolving]
  - Lower limb fracture [Unknown]
  - Accident [Unknown]
  - Drug hypersensitivity [Recovering/Resolving]
  - Dizziness [Recovering/Resolving]
  - Hypersensitivity [Recovered/Resolved]
  - Insomnia [Recovered/Resolved]
  - Gait inability [Unknown]
  - Hyperhidrosis [Unknown]
  - Vomiting [Recovered/Resolved]
  - Dyspepsia [Recovering/Resolving]
